FAERS Safety Report 4645256-5 (Version None)
Quarter: 2005Q2

REPORT INFORMATION
  Report Type: 
  Country: None (occurrence: None)
  Receive Date: 20050331
  Receipt Date: 20041221
  Transmission Date: 20051028
  Serious: Yes (Hospitalization)
  Sender: FDA-Public Use
  Company Number: 04P-163-0280386-00

PATIENT
  Age: 69 Year
  Sex: Female
  Weight: 50.8029 kg

DRUGS (3)
  1. HUMIRA [Suspect]
     Indication: RHEUMATOID ARTHRITIS
     Dosage: 40 MG, 1 IN 2 WK, SUBCUTANEOUS
     Route: 058
     Dates: start: 20030507, end: 20040920
  2. METHOTREXATE [Suspect]
     Dosage: 20 MG, 1 IN 1 WK
     Dates: start: 20000101, end: 20040920
  3. FOLIC ACID [Concomitant]

REACTIONS (1)
  - ENCEPHALITIS HERPES [None]
